FAERS Safety Report 23153128 (Version 1)
Quarter: 2023Q4

REPORT INFORMATION
  Report Type: Spontaneous
  Country: PL (occurrence: PL)
  Receive Date: 20231107
  Receipt Date: 20231107
  Transmission Date: 20240109
  Serious: Yes (Other)
  Sender: FDA-Public Use
  Company Number: None

PATIENT
  Age: 70 Year
  Weight: 93 kg

DRUGS (2)
  1. NINTEDANIB ESYLATE [Suspect]
     Active Substance: NINTEDANIB ESYLATE
     Indication: Lung neoplasm malignant
     Route: 048
     Dates: start: 20200915, end: 20201229
  2. DOCETAXEL [Suspect]
     Active Substance: DOCETAXEL\DOCETAXEL ANHYDROUS
     Indication: Lung neoplasm malignant
     Route: 042
     Dates: start: 20200915, end: 20201229

REACTIONS (2)
  - Dyspnoea [Recovering/Resolving]
  - Asthenia [Recovering/Resolving]

NARRATIVE: CASE EVENT DATE: 20210118
